FAERS Safety Report 8167136-3 (Version None)
Quarter: 2012Q1

REPORT INFORMATION
  Report Type: 
  Country: None (occurrence: None)
  Receive Date: 20120227
  Receipt Date: 20120215
  Transmission Date: 20120608
  Serious: Yes (Death, Hospitalization)
  Sender: FDA-Public Use
  Company Number: US-ACTELION-A-US2011-58570

PATIENT

DRUGS (2)
  1. EPOPROSTENOL SODIUM [Suspect]
     Indication: PULMONARY ARTERIAL HYPERTENSION
     Dosage: 12 NG/KG, PER MIN
     Route: 042
     Dates: start: 20111115, end: 20111217
  2. ASPIRIN [Concomitant]

REACTIONS (3)
  - PNEUMONIA [None]
  - RIGHT VENTRICULAR FAILURE [None]
  - PULMONARY ARTERIAL HYPERTENSION [None]
